FAERS Safety Report 18345289 (Version 1)
Quarter: 2020Q4

REPORT INFORMATION
  Report Type: Spontaneous
  Country: US (occurrence: US)
  Receive Date: 20201005
  Receipt Date: 20201005
  Transmission Date: 20210114
  Serious: Yes (Hospitalization, Disabling, Other)
  Sender: FDA-Public Use
  Company Number: US-PURDUE-USA-2020-0168633

PATIENT
  Sex: Male

DRUGS (7)
  1. OXYCODONE/ ACETAMINOPHEN TABLETS [Suspect]
     Active Substance: ACETAMINOPHEN\OXYCODONE HYDROCHLORIDE
     Indication: PRODUCT USED FOR UNKNOWN INDICATION
     Dosage: UNKNOWN
     Route: 048
  2. PERCOCET                           /00446701/ [Suspect]
     Active Substance: ACETAMINOPHEN\OXYCODONE HYDROCHLORIDE\OXYCODONE TEREPHTHALATE
     Indication: PRODUCT USED FOR UNKNOWN INDICATION
     Dosage: UNKNOWN
     Route: 048
  3. CLONAZEPAM. [Suspect]
     Active Substance: CLONAZEPAM
     Indication: PRODUCT USED FOR UNKNOWN INDICATION
     Dosage: 0.5 MG, UNK
     Route: 048
  4. OXYCONTIN [Suspect]
     Active Substance: OXYCODONE HYDROCHLORIDE
     Indication: PAIN
     Dosage: UNKNOWN
     Route: 048
  5. SUBOXONE [Suspect]
     Active Substance: BUPRENORPHINE HYDROCHLORIDE\NALOXONE HYDROCHLORIDE
     Indication: PRODUCT USED FOR UNKNOWN INDICATION
     Dosage: 8/2 MG, UNK
     Route: 060
  6. ALPRAZOLAM. [Suspect]
     Active Substance: ALPRAZOLAM
     Indication: PRODUCT USED FOR UNKNOWN INDICATION
     Dosage: 0.5 MG, UNK
     Route: 048
  7. PAXIL [Concomitant]
     Active Substance: PAROXETINE HYDROCHLORIDE
     Indication: URINARY RETENTION
     Dosage: 30 MG, AM
     Route: 048

REACTIONS (26)
  - Drug abuse [Unknown]
  - Hypotension [Unknown]
  - Pneumonia [Unknown]
  - Cardiomyopathy [Unknown]
  - Dysphagia [Unknown]
  - Tremor [Unknown]
  - Psychomotor retardation [Unknown]
  - Disability [Not Recovered/Not Resolved]
  - Brain injury [Unknown]
  - Road traffic accident [Unknown]
  - Judgement impaired [Unknown]
  - Gait disturbance [Unknown]
  - Somnolence [Unknown]
  - Drug dependence [Unknown]
  - Urinary retention [Unknown]
  - Feeding tube user [Not Recovered/Not Resolved]
  - Pyrexia [Unknown]
  - Heart rate irregular [Unknown]
  - Dysarthria [Unknown]
  - Ventricular extrasystoles [Unknown]
  - Anxiety [Unknown]
  - Decreased appetite [Unknown]
  - Overdose [Unknown]
  - Depression [Unknown]
  - Cognitive disorder [Unknown]
  - Substance-induced mood disorder [Unknown]
